FAERS Safety Report 5529357-5 (Version None)
Quarter: 2007Q4

REPORT INFORMATION
  Report Type: 
  Country: None (occurrence: None)
  Receive Date: 20071129
  Receipt Date: 20071120
  Transmission Date: 20080405
  Serious: Yes (Hospitalization, Congenital Anomaly)
  Sender: FDA-Public Use
  Company Number: A0685752A

PATIENT
  Sex: Female
  Weight: 3.2 kg

DRUGS (4)
  1. PAXIL [Suspect]
     Indication: DEPRESSION
     Dosage: 20MG PER DAY
     Dates: start: 19910101, end: 19950601
  2. RITALIN [Concomitant]
  3. DIMETAPP [Concomitant]
  4. TYLENOL [Concomitant]

REACTIONS (16)
  - CARDIAC FAILURE CONGESTIVE [None]
  - CARDIAC MURMUR [None]
  - CARDIOMEGALY [None]
  - COARCTATION OF THE AORTA [None]
  - CYANOSIS [None]
  - DERMOID CYST [None]
  - DIAPHRAGMATIC PARALYSIS [None]
  - DRUG EXPOSURE DURING PREGNANCY [None]
  - HEART DISEASE CONGENITAL [None]
  - MITRAL VALVE INCOMPETENCE [None]
  - PATENT DUCTUS ARTERIOSUS [None]
  - PERICARDIAL EFFUSION [None]
  - RIGHT VENTRICULAR HYPERTROPHY [None]
  - SUBCUTANEOUS EMPHYSEMA [None]
  - TACHYPNOEA [None]
  - VENTRICULAR SEPTAL DEFECT [None]
